FAERS Safety Report 17420197 (Version 3)
Quarter: 2020Q3

REPORT INFORMATION
  Report Type: Report from Study
  Country: DE (occurrence: DE)
  Receive Date: 20200214
  Receipt Date: 20200826
  Transmission Date: 20201102
  Serious: Yes (Death, Hospitalization, Other)
  Sender: FDA-Public Use
  Company Number: DE-TAKEDA-2020TUS009079

PATIENT
  Sex: Male
  Weight: 92 kg

DRUGS (1)
  1. VEDOLIZUMAB [Suspect]
     Active Substance: VEDOLIZUMAB
     Indication: CROHN^S DISEASE
     Dosage: 300 MILLIGRAM
     Route: 042
     Dates: start: 20190926, end: 20200220

REACTIONS (16)
  - Cardiogenic shock [Fatal]
  - Pulmonary embolism [Fatal]
  - Respiratory failure [Fatal]
  - Nausea [Not Recovered/Not Resolved]
  - Rib fracture [Fatal]
  - Pneumothorax [Fatal]
  - Brain oedema [Fatal]
  - Febrile infection [Recovered/Resolved]
  - Gastroenteritis [Recovered/Resolved]
  - Ventricular fibrillation [Fatal]
  - Sternal fracture [Fatal]
  - CSF volume increased [Fatal]
  - Cerebrospinal fluid circulation disorder [Fatal]
  - Deep vein thrombosis [Not Recovered/Not Resolved]
  - Vomiting [Not Recovered/Not Resolved]
  - Pneumonia [Recovered/Resolved]

NARRATIVE: CASE EVENT DATE: 20200129
